FAERS Safety Report 9817194 (Version 1)
Quarter: 2014Q1

REPORT INFORMATION
  Report Type: Spontaneous
  Country: US (occurrence: US)
  Receive Date: 20140114
  Receipt Date: 20140114
  Transmission Date: 20141002
  Serious: Yes (Other)
  Sender: FDA-Public Use
  Company Number: US-GE HEALTHCARE MEDICAL DIAGNOSTICS-OSCN-PR-1311S-0118

PATIENT
  Age: 45 Year
  Sex: Female

DRUGS (16)
  1. OMNISCAN [Suspect]
     Indication: PELVIC VENOUS THROMBOSIS
     Route: 042
     Dates: start: 20050504, end: 20050504
  2. OMNISCAN [Suspect]
     Indication: DEEP VEIN THROMBOSIS
     Route: 042
     Dates: start: 20050427, end: 20050427
  3. OMNISCAN [Suspect]
     Indication: PELVIC MASS
     Route: 042
     Dates: start: 20060427, end: 20060427
  4. OMNISCAN [Suspect]
     Indication: NEPHROLITHIASIS
     Route: 042
     Dates: start: 20060526, end: 20060526
  5. OMNISCAN [Suspect]
     Indication: OBSTRUCTION
     Route: 042
     Dates: start: 20060610, end: 20060610
  6. OMNISCAN [Suspect]
     Indication: OEDEMA PERIPHERAL
     Route: 042
     Dates: start: 20060621, end: 20060621
  7. MAGNEVIST [Suspect]
     Indication: SPLENIC LESION
     Route: 042
     Dates: start: 20010116, end: 20010116
  8. LEVOTHROID [Concomitant]
  9. ARANESP [Concomitant]
  10. NEPHROCAPS [Concomitant]
  11. PHOSLO [Concomitant]
  12. PREDNISONE [Concomitant]
  13. CELLCEPT [Concomitant]
  14. EPOGEN [Concomitant]
  15. RENAGEL [Concomitant]
  16. SODIUM BICARBONATE [Concomitant]

REACTIONS (1)
  - Nephrogenic systemic fibrosis [Not Recovered/Not Resolved]
